FAERS Safety Report 8623846 (Version 2)
Quarter: 2012Q4

REPORT INFORMATION
  Report Type: 
  Country: US (occurrence: US)
  Receive Date: 20120620
  Receipt Date: 20121023
  Transmission Date: 20130627
  Serious: Yes (Hospitalization)
  Sender: FDA-Public Use
  Company Number: US-BAYER-2012-057333

PATIENT
  Age: 27 Year
  Sex: Female
  Weight: 72.56 kg

DRUGS (5)
  1. YAZ [Suspect]
     Dosage: UNK
     Dates: start: 200804, end: 200907
  2. IBUPROFEN [Concomitant]
  3. MAXALT [Concomitant]
  4. DURICEF [Concomitant]
  5. PERCOCET [Concomitant]

REACTIONS (8)
  - Gallbladder disorder [None]
  - Biliary dyskinesia [None]
  - Abdominal pain [None]
  - Pain [None]
  - Injury [None]
  - General physical health deterioration [None]
  - Anxiety [None]
  - Emotional distress [None]
